FAERS Safety Report 9049166 (Version 1)
Quarter: 2013Q1

REPORT INFORMATION
  Report Type: Spontaneous
  Country: US (occurrence: None)
  Receive Date: 20130130
  Receipt Date: 20130130
  Transmission Date: 20140127
  Serious: No
  Sender: FDA-Public Use
  Company Number: None

PATIENT
  Age: 86 Year
  Sex: Female

DRUGS (1)
  1. LEVOFLOXACIN [Suspect]

REACTIONS (4)
  - Pain in extremity [None]
  - Tendonitis [None]
  - Bursitis [None]
  - Tendon rupture [None]
